FAERS Safety Report 10939929 (Version 2)
Quarter: 2015Q3

REPORT INFORMATION
  Report Type: Spontaneous
  Country: IT (occurrence: IT)
  Receive Date: 20150322
  Receipt Date: 20150714
  Transmission Date: 20151125
  Serious: Yes (Congenital Anomaly)
  Sender: FDA-Public Use
  Company Number: IT-TEVA-548119ACC

PATIENT
  Age: 0 Day
  Sex: Male

DRUGS (1)
  1. COPAXONE [Suspect]
     Active Substance: GLATIRAMER ACETATE
     Indication: RELAPSING-REMITTING MULTIPLE SCLEROSIS
     Dosage: 1 DOSAGE FORMS DAILY; 1 DF DAILY
     Route: 058
     Dates: start: 20130401, end: 20131031

REACTIONS (1)
  - Polydactyly [Unknown]

NARRATIVE: CASE EVENT DATE: 20140714
